FAERS Safety Report 9115480 (Version 1)
Quarter: 2013Q1

REPORT INFORMATION
  Report Type: Spontaneous
  Country: US (occurrence: US)
  Receive Date: 20130225
  Receipt Date: 20130225
  Transmission Date: 20140127
  Serious: Yes (Death)
  Sender: FDA-Public Use
  Company Number: US-BAYER-2013-022067

PATIENT
  Age: 44 Year
  Sex: Female
  Weight: 118 kg

DRUGS (2)
  1. YASMIN [Suspect]
  2. NAPROSYN [Concomitant]

REACTIONS (1)
  - Pulmonary embolism [Fatal]
